FAERS Safety Report 21149411 (Version 5)
Quarter: 2022Q4

REPORT INFORMATION
  Report Type: Report from Study
  Country: CA (occurrence: CA)
  Receive Date: 20220729
  Receipt Date: 20221026
  Transmission Date: 20230113
  Serious: Yes (Other)
  Sender: FDA-Public Use
  Company Number: CA-JNJFOC-20220732771

PATIENT
  Age: 21 Year
  Sex: Female
  Weight: 50 kg

DRUGS (1)
  1. REMICADE [Suspect]
     Active Substance: INFLIXIMAB
     Indication: Crohn^s disease
     Dosage: UNIT DOSE: 500 MG?ADDITIONAL EXPIRATION DATE: JAN-2025
     Route: 042
     Dates: start: 20190522

REACTIONS (19)
  - Haematochezia [Not Recovered/Not Resolved]
  - Conjunctivitis [Not Recovered/Not Resolved]
  - COVID-19 [Recovered/Resolved]
  - Episcleritis [Unknown]
  - Mucous stools [Not Recovered/Not Resolved]
  - Gait disturbance [Unknown]
  - Gingival pain [Unknown]
  - Oropharyngeal pain [Unknown]
  - Gingival erythema [Unknown]
  - C-reactive protein increased [Unknown]
  - Faecal calprotectin increased [Unknown]
  - Frequent bowel movements [Unknown]
  - Myalgia [Unknown]
  - Diarrhoea [Unknown]
  - Abdominal pain [Not Recovered/Not Resolved]
  - Arthralgia [Unknown]
  - Loss of therapeutic response [Unknown]
  - Inappropriate schedule of product administration [Unknown]
  - Off label use [Unknown]

NARRATIVE: CASE EVENT DATE: 20190522
